FAERS Safety Report 14836496 (Version 6)
Quarter: 2018Q4

REPORT INFORMATION
  Report Type: Report from Study
  Country: JP (occurrence: JP)
  Receive Date: 20180502
  Receipt Date: 20181113
  Transmission Date: 20190204
  Serious: Yes (Death, Hospitalization, Disabling, Other)
  Sender: FDA-Public Use
  Company Number: JP-BRISTOL-MYERS SQUIBB COMPANY-BMS-2018-039410

PATIENT
  Age: 65 Year
  Sex: Female
  Weight: 35 kg

DRUGS (1)
  1. NIVOLUMAB [Suspect]
     Active Substance: NIVOLUMAB
     Indication: GASTRIC CANCER RECURRENT
     Dosage: 3 MG/KG, UNK
     Route: 041
     Dates: start: 20180417

REACTIONS (9)
  - Hypoglycaemia [Fatal]
  - Staphylococcal sepsis [Fatal]
  - Hepatic function abnormal [Fatal]
  - Disseminated intravascular coagulation [Fatal]
  - Dehydration [Fatal]
  - Decreased appetite [Fatal]
  - Altered state of consciousness [Fatal]
  - Urinary tract infection [Fatal]
  - Malignant neoplasm progression [Fatal]

NARRATIVE: CASE EVENT DATE: 20180418
